FAERS Safety Report 5516402-6 (Version None)
Quarter: 2007Q4

REPORT INFORMATION
  Report Type: 
  Country: None (occurrence: None)
  Receive Date: 20071114
  Receipt Date: 20070219
  Transmission Date: 20080405
  Serious: No
  Sender: FDA-Public Use
  Company Number: A0639825A

PATIENT
  Age: 53 Year
  Sex: Female

DRUGS (34)
  1. COMMIT [Suspect]
  2. COMMIT [Suspect]
  3. COMMIT [Suspect]
  4. SYNTHROID [Concomitant]
  5. ENALAPRIL MALEATE [Concomitant]
  6. CELEXA [Concomitant]
  7. NASONEX [Concomitant]
  8. CARDURA [Concomitant]
  9. BACLOFEN [Concomitant]
  10. PROVIGIL [Concomitant]
  11. TOPROL-XL [Concomitant]
  12. VYTORIN [Concomitant]
  13. COGENTIN [Concomitant]
  14. AVONEX [Concomitant]
  15. ZYRTEC [Concomitant]
  16. ADVAIR DISKUS 100/50 [Concomitant]
     Route: 055
  17. LANTUS [Concomitant]
  18. LASIX [Concomitant]
  19. MICRO-K [Concomitant]
  20. NEURONTIN [Concomitant]
  21. ZANAFLEX [Concomitant]
  22. FERROUS SULFATE TAB [Concomitant]
  23. LEVSIN [Concomitant]
  24. ENTEX PSE [Concomitant]
  25. ALBUTEROL [Concomitant]
  26. XOPENEX [Concomitant]
  27. ATROVENT [Concomitant]
  28. CLARINEX [Concomitant]
  29. ASPIRIN [Concomitant]
  30. CENTRUM SILVER [Concomitant]
  31. GARLIQUE [Concomitant]
  32. COLACE [Concomitant]
  33. IBUPROFEN [Concomitant]
  34. TYLENOL [Concomitant]

REACTIONS (1)
  - INTENTIONAL DRUG MISUSE [None]
